FAERS Safety Report 5239498-8 (Version None)
Quarter: 2007Q1

REPORT INFORMATION
  Report Type: 
  Country: None (occurrence: None)
  Receive Date: 20070216
  Receipt Date: 20070208
  Transmission Date: 20070707
  Serious: Yes (Death, Life-Threatening, Other)
  Sender: FDA-Public Use
  Company Number: DK-JNJFOC-20070202285

PATIENT
  Age: 65 Year
  Sex: Male

DRUGS (7)
  1. REMICADE [Suspect]
     Indication: ANKYLOSING SPONDYLITIS
     Route: 042
  2. METHOTREXATE [Concomitant]
     Route: 065
  3. FOLSYRE [Concomitant]
     Route: 065
  4. OXYCODONE HCL [Concomitant]
     Route: 048
  5. PARACETAMOL [Concomitant]
     Route: 048
  6. ESOMEPRAZOLE MAGNESIUM [Concomitant]
     Route: 048
  7. ACETYLSALICYLIC ACID SRT [Concomitant]
     Route: 048

REACTIONS (5)
  - ACUTE MYELOID LEUKAEMIA [None]
  - ADENOMA BENIGN [None]
  - GASTROINTESTINAL DYSPLASIA [None]
  - MYELODYSPLASTIC SYNDROME [None]
  - REFRACTORY ANAEMIA WITH AN EXCESS OF BLASTS [None]
